FAERS Safety Report 8262053-2 (Version None)
Quarter: 2012Q1

REPORT INFORMATION
  Report Type: 
  Country: None (occurrence: None)
  Receive Date: 20120327
  Receipt Date: 20090526
  Transmission Date: 20120608
  Serious: Yes (Other)
  Sender: FDA-Public Use
  Company Number: PHEH2009US03143

PATIENT
  Age: 65 Year
  Sex: Male

DRUGS (2)
  1. VINCRISTINE [Concomitant]
  2. GLEEVEC [Suspect]
     Indication: ACUTE LYMPHOCYTIC LEUKAEMIA
     Dosage: 400 MG, ORAL
     Route: 048
     Dates: start: 20090216

REACTIONS (3)
  - GENERALISED OEDEMA [None]
  - CARDIAC FAILURE CONGESTIVE [None]
  - ASCITES [None]
